FAERS Safety Report 4878197-9 (Version None)
Quarter: 2005Q4

REPORT INFORMATION
  Report Type: 
  Country: None (occurrence: None)
  Receive Date: 20051209
  Receipt Date: 20051007
  Transmission Date: 20060501
  Serious: Yes (Hospitalization, Other)
  Sender: FDA-Public Use
  Company Number: USA-2004-0015721

PATIENT
  Age: 47 Year
  Sex: Male
  Weight: 68 kg

DRUGS (9)
  1. OXYCONTIN [Suspect]
     Indication: PAIN
     Dosage: 20 MG AM
  2. FLEXERIL [Concomitant]
  3. PERCOCET [Concomitant]
  4. XANAX [Concomitant]
  5. NEXIUM [Concomitant]
  6. AVALIDE [Concomitant]
  7. ASPIRIN [Concomitant]
  8. MULTIVITAMIN [Concomitant]
  9. METHADONE [Concomitant]

REACTIONS (38)
  - ABDOMINAL DISTENSION [None]
  - ABDOMINAL PAIN [None]
  - ANOREXIA [None]
  - ANXIETY [None]
  - ARTHRALGIA [None]
  - ASTHENIA [None]
  - CHEST PAIN [None]
  - CLUSTER HEADACHE [None]
  - CONDITION AGGRAVATED [None]
  - CONSTIPATION [None]
  - DECREASED APPETITE [None]
  - DEPRESSED MOOD [None]
  - DEPRESSION [None]
  - DIARRHOEA [None]
  - DIFFICULTY IN WALKING [None]
  - DRUG DEPENDENCE [None]
  - DRUG WITHDRAWAL SYNDROME [None]
  - DYSPHAGIA [None]
  - DYSPNOEA [None]
  - EAR PAIN [None]
  - FLAT AFFECT [None]
  - HEADACHE [None]
  - HYPOAESTHESIA [None]
  - INADEQUATE ANALGESIA [None]
  - MEDICATION ERROR [None]
  - MIGRAINE [None]
  - NASAL CONGESTION [None]
  - OBSESSIVE-COMPULSIVE DISORDER [None]
  - PAIN [None]
  - PAIN IN EXTREMITY [None]
  - PARAESTHESIA [None]
  - PARANOIA [None]
  - PHARYNGOLARYNGEAL PAIN [None]
  - REGURGITATION OF FOOD [None]
  - RHINALGIA [None]
  - SINUS CONGESTION [None]
  - VERTIGO [None]
  - WEIGHT DECREASED [None]
